FAERS Safety Report 21737033 (Version 1)
Quarter: 2022Q4

REPORT INFORMATION
  Report Type: Spontaneous
  Country: US (occurrence: US)
  Receive Date: 20221216
  Receipt Date: 20221216
  Transmission Date: 20230113
  Serious: No
  Sender: FDA-Public Use
  Company Number: US-009507513-2212USA005681

PATIENT
  Sex: Male

DRUGS (2)
  1. KEYTRUDA [Suspect]
     Active Substance: PEMBROLIZUMAB
     Dosage: UNK
  2. LENVATINIB MESYLATE [Suspect]
     Active Substance: LENVATINIB MESYLATE
     Indication: Renal cell carcinoma
     Dosage: 10 MILLIGRAM, QD
     Route: 048
     Dates: start: 20220920

REACTIONS (5)
  - Fatigue [Unknown]
  - Rash [Recovered/Resolved]
  - Influenza like illness [Recovered/Resolved]
  - Dysphonia [Unknown]
  - Erythema [Unknown]

NARRATIVE: CASE EVENT DATE: 20221101
